FAERS Safety Report 18277929 (Version 1)
Quarter: 2020Q3

REPORT INFORMATION
  Report Type: Spontaneous
  Country: US (occurrence: US)
  Receive Date: 20200916
  Receipt Date: 20200916
  Transmission Date: 20201103
  Serious: Yes (Hospitalization)
  Sender: FDA-Public Use
  Company Number: None

PATIENT
  Age: 101 Year
  Sex: Female

DRUGS (1)
  1. MYLERAN [Suspect]
     Active Substance: BUSULFAN
     Indication: AUTOIMMUNE DISORDER
     Route: 048
     Dates: start: 201512

REACTIONS (1)
  - Gastrointestinal haemorrhage [None]

NARRATIVE: CASE EVENT DATE: 20200905
